FAERS Safety Report 9524030 (Version 1)
Quarter: 2013Q3

REPORT INFORMATION
  Report Type: Spontaneous
  Country: US (occurrence: None)
  Receive Date: 20130912
  Receipt Date: 20130912
  Transmission Date: 20140515
  Serious: Yes (Hospitalization)
  Sender: FDA-Public Use
  Company Number: None

PATIENT
  Age: 91 Year
  Sex: Male
  Weight: 64 kg

DRUGS (12)
  1. WARFARIN UNKNOWN UNKNOWN [Suspect]
     Indication: CARDIAC VALVE DISEASE
     Dosage: 2 MG  QD  ORAL?DATES OF USE:  UNKNOWN --PRIOR TO ADMISSION
     Route: 048
  2. ALLOPURINONL [Concomitant]
  3. AMLODIPINE [Concomitant]
  4. BACLOFEN [Concomitant]
  5. DONEPEZIL [Concomitant]
  6. FUROSEMIDE [Concomitant]
  7. IPRATROPIUM [Concomitant]
  8. METOPROLOL [Concomitant]
  9. OMEPRAZOLE [Concomitant]
  10. RAMIPRIL [Concomitant]
  11. SALSALATE [Concomitant]
  12. SIMVASTATIN [Concomitant]

REACTIONS (5)
  - International normalised ratio increased [None]
  - Gastritis [None]
  - Pleural effusion [None]
  - Pneumothorax [None]
  - Gastrointestinal haemorrhage [None]
